FAERS Safety Report 4345771-8 (Version None)
Quarter: 2004Q2

REPORT INFORMATION
  Report Type: 
  Country: None (occurrence: None)
  Receive Date: 20040421
  Receipt Date: 20040408
  Transmission Date: 20050107
  Serious: Yes (Hospitalization)
  Sender: FDA-Public Use
  Company Number: 2004IM000581

PATIENT
  Age: 69 Year
  Sex: Female

DRUGS (1)
  1. ADVAFERON (A643_INTERFERON ALFACON-1) [Suspect]
     Dosage: 12 MU;QD;SUBCUTANEOUS
     Route: 058
     Dates: start: 20040201, end: 20040407

REACTIONS (2)
  - AMMONIA INCREASED [None]
  - ASCITES [None]
